FAERS Safety Report 7990068-8 (Version None)
Quarter: 2011Q4

REPORT INFORMATION
  Report Type: 
  Country: None (occurrence: None)
  Receive Date: 20111219
  Receipt Date: 20111019
  Transmission Date: 20120403
  Serious: No
  Sender: FDA-Public Use
  Company Number: US-ASTRAZENECA-2011SE63077

PATIENT
  Age: 65 Year
  Sex: Male
  Weight: 77.1 kg

DRUGS (4)
  1. CRESTOR [Suspect]
     Route: 048
     Dates: start: 20110917, end: 20110101
  2. PLAVIX [Concomitant]
  3. ASPIRIN [Concomitant]
  4. CRESTOR [Suspect]
     Indication: BLOOD CHOLESTEROL
     Route: 048
     Dates: start: 20110315, end: 20110101

REACTIONS (4)
  - LIGAMENT SPRAIN [None]
  - MUSCLE ATROPHY [None]
  - MUSCULAR WEAKNESS [None]
  - PAIN IN EXTREMITY [None]
